FAERS Safety Report 20927449 (Version 1)
Quarter: 2022Q2

REPORT INFORMATION
  Report Type: Spontaneous
  Country: US (occurrence: US)
  Receive Date: 20220607
  Receipt Date: 20220607
  Transmission Date: 20220720
  Serious: No
  Sender: FDA-Public Use
  Company Number: US-RIGEL PHARMACEUTICALS, INC.-2021FOS000356

PATIENT
  Sex: Female
  Weight: 56.689 kg

DRUGS (1)
  1. TAVALISSE [Suspect]
     Active Substance: FOSTAMATINIB
     Indication: Immune thrombocytopenia
     Dosage: 100 MG, BID
     Route: 048
     Dates: start: 20190824

REACTIONS (4)
  - Migraine [Unknown]
  - Hypersensitivity [Unknown]
  - Memory impairment [Unknown]
  - Product dose omission issue [Unknown]
